FAERS Safety Report 6179128-4 (Version None)
Quarter: 2009Q2

REPORT INFORMATION
  Report Type: 
  Country: None (occurrence: None)
  Receive Date: 20090430
  Receipt Date: 20090323
  Transmission Date: 20091009
  Serious: Yes (Other)
  Sender: FDA-Public Use
  Company Number: 09US000367

PATIENT
  Age: 66 Year
  Sex: Female
  Weight: 65.3 kg

DRUGS (8)
  1. DIPHENHYDRAMINE HCL [Suspect]
     Indication: ANAPHYLACTIC SHOCK
     Dosage: 10-15 TABLETS AT ONCE, ORAL; 25 MG, PM, ORAL
     Route: 048
     Dates: start: 20080321, end: 20090321
  2. DIPHENHYDRAMINE HCL [Suspect]
     Indication: SINUS DISORDER
     Dosage: 10-15 TABLETS AT ONCE, ORAL; 25 MG, PM, ORAL
     Route: 048
     Dates: start: 20080321, end: 20090321
  3. DIPHENHYDRAMINE HCL [Suspect]
     Indication: ANAPHYLACTIC SHOCK
     Dosage: 10-15 TABLETS AT ONCE, ORAL; 25 MG, PM, ORAL
     Route: 048
     Dates: start: 20050323
  4. DIPHENHYDRAMINE HCL [Suspect]
     Indication: SINUS DISORDER
     Dosage: 10-15 TABLETS AT ONCE, ORAL; 25 MG, PM, ORAL
     Route: 048
     Dates: start: 20050323
  5. UNSPECIFIED MEDICATION [Concomitant]
  6. NALTREXONE (NALTREXONE HYDROCHLORIDE) [Concomitant]
  7. LEVOXYL [Concomitant]
  8. NIACIN [Concomitant]

REACTIONS (7)
  - AMNESIA [None]
  - ANAPHYLACTIC SHOCK [None]
  - MALAISE [None]
  - OVERDOSE [None]
  - SOMNOLENCE [None]
  - SPEECH DISORDER [None]
  - TRANSIENT ISCHAEMIC ATTACK [None]
